FAERS Safety Report 4266001-1 (Version None)
Quarter: 2004Q1

REPORT INFORMATION
  Report Type: 
  Country: None (occurrence: None)
  Receive Date: 20040107
  Receipt Date: 20040107
  Transmission Date: 20041129
  Serious: Yes (Hospitalization)
  Sender: FDA-Public Use
  Company Number: None

PATIENT
  Age: 77 Year
  Sex: Female

DRUGS (3)
  1. NIPENT [Suspect]
     Indication: LYMPHOMA
  2. CYTOXAN [Suspect]
  3. RITUXAN [Suspect]

REACTIONS (2)
  - DIALYSIS [None]
  - TUMOUR LYSIS SYNDROME [None]
